FAERS Safety Report 7823132 (Version 2)
Quarter: 2015Q2

REPORT INFORMATION
  Report Type: Spontaneous
  Country: US (occurrence: US)
  Receive Date: 20110223
  Receipt Date: 20150427
  Transmission Date: 20150821
  Serious: Yes (Other)
  Sender: FDA-Public Use
  Company Number: US-ROCHE-734504

PATIENT
  Age: 21 Year
  Sex: Male
  Weight: 88.5 kg

DRUGS (1)
  1. ACCUTANE [Suspect]
     Active Substance: ISOTRETINOIN
     Indication: ACNE
     Route: 065
     Dates: start: 199811, end: 199910

REACTIONS (9)
  - Irritable bowel syndrome [Unknown]
  - Rectal haemorrhage [Unknown]
  - Abdominal pain [Unknown]
  - Inflammatory bowel disease [Unknown]
  - Colitis ulcerative [Unknown]
  - Nausea [Unknown]
  - Intestinal haemorrhage [Unknown]
  - Depression [Unknown]
  - Rectal polyp [Unknown]

NARRATIVE: CASE EVENT DATE: 200002
